FAERS Safety Report 8890542 (Version 1)
Quarter: 2012Q4

REPORT INFORMATION
  Report Type: 
  Country: GB (occurrence: GB)
  Receive Date: 20121106
  Receipt Date: 20121106
  Transmission Date: 20130627
  Serious: Yes (Death, Other)
  Sender: FDA-Public Use
  Company Number: GB-WATSON-2012-18612

PATIENT
  Sex: Female
  Weight: 57 kg

DRUGS (1)
  1. MIRTAZAPINE (UNKNOWN) [Suspect]
     Indication: DEPRESSED MOOD
     Dosage: 15mg
     Route: 048
     Dates: start: 20120625, end: 20120927

REACTIONS (4)
  - Angioedema [Recovered/Resolved]
  - Swollen tongue [Recovered/Resolved]
  - Oedema mouth [Recovered/Resolved]
  - Dysphagia [Recovered/Resolved]
